FAERS Safety Report 6095255-4 (Version None)
Quarter: 2009Q1

REPORT INFORMATION
  Report Type: 
  Country: None (occurrence: None)
  Receive Date: 20090227
  Receipt Date: 20080222
  Transmission Date: 20090719
  Serious: Yes (Hospitalization)
  Sender: FDA-Public Use
  Company Number: A0711353A

PATIENT
  Age: 15 Year
  Sex: Female

DRUGS (5)
  1. LAMICTAL [Suspect]
     Indication: BIPOLAR DISORDER
     Dosage: 100MG TWICE PER DAY
     Route: 048
     Dates: start: 20070401
  2. CELEXA [Concomitant]
  3. COUGH SUPPRESSANT [Concomitant]
  4. ANTIBIOTIC [Concomitant]
  5. PHENERGAN [Concomitant]

REACTIONS (7)
  - DIARRHOEA [None]
  - DRUG EXPOSURE DURING PREGNANCY [None]
  - INFLUENZA [None]
  - PRURITUS [None]
  - PYREXIA [None]
  - RASH [None]
  - TREATMENT NONCOMPLIANCE [None]
